FAERS Safety Report 18904551 (Version 1)
Quarter: 2021Q1

REPORT INFORMATION
  Report Type: Spontaneous
  Country: US (occurrence: US)
  Receive Date: 20210217
  Receipt Date: 20210217
  Transmission Date: 20210420
  Serious: Yes (Other)
  Sender: FDA-Public Use
  Company Number: None

PATIENT
  Age: 74 Year
  Sex: Female
  Weight: 93.7 kg

DRUGS (3)
  1. ALTEPLASE. [Suspect]
     Active Substance: ALTEPLASE
     Indication: ISCHAEMIC STROKE
     Dosage: ?          OTHER FREQUENCY:1 TIME ONLY;?
     Route: 040
     Dates: start: 20210216, end: 20210216
  2. TISSUE PLASMINOGEN ACTIVATOR [Concomitant]
     Active Substance: ALTEPLASE
     Dates: start: 20210216, end: 20210216
  3. ALTEPLASE. [Suspect]
     Active Substance: ALTEPLASE
     Indication: ISCHAEMIC STROKE
     Dosage: ?          OTHER FREQUENCY:X 1 DOSE;?
     Route: 041
     Dates: start: 20210216, end: 20210216

REACTIONS (2)
  - Angioedema [None]
  - Haemorrhage [None]

NARRATIVE: CASE EVENT DATE: 20210216
